FAERS Safety Report 21161565 (Version 1)
Quarter: 2022Q3

REPORT INFORMATION
  Report Type: Spontaneous
  Country: US (occurrence: None)
  Receive Date: 20220802
  Receipt Date: 20220802
  Transmission Date: 20221027
  Serious: No
  Sender: FDA-Public Use
  Company Number: None

PATIENT
  Sex: Female
  Weight: 102.51 kg

DRUGS (12)
  1. PIQRAY [Suspect]
     Active Substance: ALPELISIB
     Indication: Breast cancer female
     Dosage: 300MG DAILY ORAL?
     Route: 048
     Dates: start: 202109
  2. CALCIUM CARBONATE [Concomitant]
     Active Substance: CALCIUM CARBONATE
  3. CALCIUM CITRATE [Concomitant]
     Active Substance: CALCIUM CITRATE
  4. CHOLECALCIFEROL [Concomitant]
     Active Substance: CHOLECALCIFEROL
  5. IBRANCE [Concomitant]
     Active Substance: PALBOCICLIB
  6. IBUPROFEN [Concomitant]
     Active Substance: IBUPROFEN
  7. LORAZEPAM [Concomitant]
     Active Substance: LORAZEPAM
  8. VITAMIN B12 [Concomitant]
     Active Substance: CYANOCOBALAMIN
  9. VITAMIN D3 [Concomitant]
     Active Substance: CHOLECALCIFEROL
  10. OXYCODONE [Concomitant]
     Active Substance: OXYCODONE
  11. NYSTOP [Concomitant]
     Active Substance: NYSTATIN
  12. PROCHLORPERAZINE [Concomitant]
     Active Substance: PROCHLORPERAZINE

REACTIONS (1)
  - Disease progression [None]
